FAERS Safety Report 7405943-2 (Version None)
Quarter: 2011Q2

REPORT INFORMATION
  Report Type: 
  Country: None (occurrence: None)
  Receive Date: 20110411
  Receipt Date: 20110328
  Transmission Date: 20111010
  Serious: Yes (Hospitalization)
  Sender: FDA-Public Use
  Company Number: ES-JNJFOC-20110402205

PATIENT
  Age: 80 Year
  Sex: Male

DRUGS (4)
  1. GALANTAMINE HYDROBROMIDE [Suspect]
     Indication: DEMENTIA ALZHEIMER'S TYPE
     Route: 065
  2. GALANTAMINE HYDROBROMIDE [Suspect]
     Route: 065
  3. TORSEMIDE [Concomitant]
     Indication: HYPERTENSION
  4. GEMFIBROZIL [Concomitant]
     Indication: DYSLIPIDAEMIA

REACTIONS (1)
  - MYOCLONUS [None]
